FAERS Safety Report 8717614 (Version 2)
Quarter: 2012Q4

REPORT INFORMATION
  Report Type: 
  Country: DE (occurrence: DE)
  Receive Date: 20120810
  Receipt Date: 20121012
  Transmission Date: 20130627
  Serious: Yes (Hospitalization, Other)
  Sender: FDA-Public Use
  Company Number: DE-PFIZER INC-2012191982

PATIENT
  Age: 57 Year
  Sex: Female

DRUGS (2)
  1. AZULFIDINE [Suspect]
     Indication: ARTHRITIS
     Dosage: 2 DF, 2x/day
     Route: 048
     Dates: start: 200902, end: 201210
  2. AZULFIDINE [Suspect]
     Dosage: 2 DF, 3x/day
     Route: 048
     Dates: start: 2011

REACTIONS (3)
  - Raynaud^s phenomenon [Not Recovered/Not Resolved]
  - Oedema peripheral [Not Recovered/Not Resolved]
  - Skin ulcer [Not Recovered/Not Resolved]
